FAERS Safety Report 9115674 (Version 1)
Quarter: 2013Q1

REPORT INFORMATION
  Report Type: Spontaneous
  Country: US (occurrence: US)
  Receive Date: 20130225
  Receipt Date: 20130225
  Transmission Date: 20140127
  Serious: Yes (Life-Threatening, Disabling, Other)
  Sender: FDA-Public Use
  Company Number: US-009507513-1302USA010876

PATIENT
  Sex: Male

DRUGS (4)
  1. VYTORIN [Suspect]
     Dosage: UNK
     Route: 048
     Dates: start: 2005
  2. LISINOPRIL [Concomitant]
     Dosage: UNK
  3. INDOCIN (INDOMETHACIN) [Concomitant]
     Dosage: UNK
  4. HYDROCHLOROTHIAZIDE [Concomitant]
     Dosage: UNK

REACTIONS (1)
  - Rectal cancer [Not Recovered/Not Resolved]
